FAERS Safety Report 23267333 (Version 4)
Quarter: 2025Q4

REPORT INFORMATION
  Report Type: Spontaneous
  Country: JP (occurrence: JP)
  Receive Date: 20231206
  Receipt Date: 20251229
  Transmission Date: 20260117
  Serious: Yes (Death, Other)
  Sender: JOHNSON AND JOHNSON
  Company Number: JP-JNJFOC-20231206261

PATIENT
  Age: 46 Year
  Sex: Male
  Weight: 73.6 kg

DRUGS (17)
  1. OPSUMIT [Suspect]
     Active Substance: MACITENTAN
     Indication: Pulmonary hypertension
     Route: 048
  2. TADALAFIL [Suspect]
     Active Substance: TADALAFIL
     Indication: Pulmonary hypertension
     Route: 048
  3. TADALAFIL [Suspect]
     Active Substance: TADALAFIL
     Dosage: 20-40MG
     Route: 048
  4. DOBUTAMINE [Concomitant]
     Active Substance: DOBUTAMINE HYDROCHLORIDE
     Indication: Anal incontinence
     Dosage: 4-7?
     Route: 042
  5. DOBUTAMINE [Concomitant]
     Active Substance: DOBUTAMINE HYDROCHLORIDE
     Indication: Blood pressure decreased
  6. FUROSEMIDE [Concomitant]
     Active Substance: FUROSEMIDE
     Indication: Product used for unknown indication
     Dosage: 20-40MG
  7. SAMSCA [Concomitant]
     Active Substance: TOLVAPTAN
     Indication: Product used for unknown indication
     Dosage: 3.75-7.5MG
     Route: 048
  8. AMPICILLIN SODIUM\SULBACTAM SODIUM [Concomitant]
     Active Substance: AMPICILLIN SODIUM\SULBACTAM SODIUM
     Indication: Product used for unknown indication
     Dosage: 3G,Q8HR
  9. ATORVASTATIN [Concomitant]
     Active Substance: ATORVASTATIN
     Indication: Product used for unknown indication
     Dosage: DOSE UNKNOWN
     Route: 048
  10. ENALAPRIL [Concomitant]
     Active Substance: ENALAPRIL
     Indication: Product used for unknown indication
     Dosage: DOSE UNKNOWN
     Route: 048
  11. FEBUXOSTAT [Concomitant]
     Active Substance: FEBUXOSTAT
     Indication: Product used for unknown indication
     Dosage: DOSE UNKNOWN
     Route: 048
  12. LANSOPRAZOLE [Concomitant]
     Active Substance: LANSOPRAZOLE
     Indication: Product used for unknown indication
     Dosage: DOSE UNKNOWN
  13. AZOSEMIDE [Concomitant]
     Active Substance: AZOSEMIDE
     Indication: Product used for unknown indication
     Dosage: DOSE UNKNOWN
     Route: 048
  14. ASPIRIN [Concomitant]
     Active Substance: ASPIRIN
     Indication: Product used for unknown indication
     Dosage: DOSE UNKNOWN
  15. PREDONINE [Concomitant]
     Active Substance: PREDNISOLONE
     Indication: Product used for unknown indication
     Dosage: DOSE UNKNOWN
  16. SITAGLIPTIN PHOSPHATE [Concomitant]
     Active Substance: SITAGLIPTIN PHOSPHATE
     Indication: Product used for unknown indication
     Dosage: DOSE UNKNOWN
     Route: 048
  17. EDOXABAN TOSYLATE [Concomitant]
     Active Substance: EDOXABAN TOSYLATE
     Indication: Product used for unknown indication
     Dosage: DOSE UNKNOWN
     Route: 048

REACTIONS (4)
  - Right ventricular failure [Fatal]
  - Pulmonary hypertension [Fatal]
  - Loss of consciousness [Unknown]
  - Dyspnoea [Unknown]
